FAERS Safety Report 8596048 (Version 3)
Quarter: 2014Q1

REPORT INFORMATION
  Report Type: Spontaneous
  Country: US (occurrence: US)
  Receive Date: 20120605
  Receipt Date: 20140124
  Transmission Date: 20141002
  Serious: Yes (Disabling)
  Sender: FDA-Public Use
  Company Number: US-ASTRAZENECA-2012SE35018

PATIENT
  Age: 46 Year
  Sex: Female
  Weight: 148.8 kg

DRUGS (36)
  1. NEXIUM [Suspect]
     Indication: GASTROOESOPHAGEAL REFLUX DISEASE
     Route: 048
  2. NEXIUM [Suspect]
     Indication: GASTROOESOPHAGEAL REFLUX DISEASE
     Dosage: 2 TIMES A DAY
     Route: 048
  3. NEXIUM [Suspect]
     Indication: GASTROOESOPHAGEAL REFLUX DISEASE
     Dosage: 2-3 TIMES A DAY
     Route: 048
  4. NEXIUM [Suspect]
     Indication: GASTROOESOPHAGEAL REFLUX DISEASE
     Route: 048
     Dates: start: 1998
  5. NEXIUM [Suspect]
     Indication: GASTROOESOPHAGEAL REFLUX DISEASE
     Route: 048
     Dates: start: 20130311
  6. NEXIUM [Suspect]
     Indication: GASTROOESOPHAGEAL REFLUX DISEASE
     Route: 048
     Dates: start: 20130311
  7. PRILOSEC [Suspect]
     Dosage: 2 TIMES A DAY
     Route: 048
  8. ZANTAC [Concomitant]
     Dates: start: 1980
  9. ALKA-SELTZER [Concomitant]
  10. PEPTO-BISMOL [Concomitant]
  11. ROLAIDS [Concomitant]
  12. MYLANTA [Concomitant]
  13. FOSAMAX [Concomitant]
     Indication: BONE DISORDER
  14. BONIVA [Concomitant]
  15. ACTONEL [Concomitant]
     Route: 048
  16. ATELVIA [Concomitant]
  17. ZOLPIDEM [Concomitant]
     Indication: INSOMNIA
     Dates: start: 20130310
  18. LOSARTAN POTASSIUM [Concomitant]
     Route: 048
     Dates: start: 20130205
  19. SIMVASTATIN [Concomitant]
     Indication: BLOOD CHOLESTEROL ABNORMAL
     Route: 048
     Dates: start: 20130206
  20. TRAMADOL HCL [Concomitant]
     Indication: PAIN
     Route: 048
     Dates: start: 20130206
  21. PERCOCET [Concomitant]
     Indication: PAIN
  22. VICODON [Concomitant]
     Indication: PAIN
  23. TIZANIDINE [Concomitant]
     Indication: MUSCLE SPASMS
  24. PROPRANOLOL [Concomitant]
     Indication: TREMOR
     Route: 048
     Dates: start: 20130207
  25. SALSALATE [Concomitant]
     Indication: ARTHRITIS
  26. XOPENEX HFA [Concomitant]
     Indication: ASTHMA
  27. BUMETANIDE [Concomitant]
     Indication: DIURETIC THERAPY
     Route: 048
     Dates: start: 20130206
  28. PROCHLORPERAZINE [Concomitant]
     Indication: HYPERTENSION
  29. CYMBALTA [Concomitant]
     Indication: DEPRESSION
     Dates: start: 20130311
  30. AMLODIPINE BESYLATE [Concomitant]
     Route: 048
     Dates: start: 20130206
  31. ALBUTEROL [Concomitant]
  32. FLEXERIL [Concomitant]
  33. ZOLOFT [Concomitant]
  34. NITROGLYCERIN [Concomitant]
  35. ASPIRIN [Concomitant]
  36. ALPRAZOLAM [Concomitant]
     Indication: ANXIETY
     Route: 048

REACTIONS (14)
  - Depression [Unknown]
  - Osteoporosis [Unknown]
  - Ankle fracture [Unknown]
  - Lower limb fracture [Unknown]
  - Tremor [Unknown]
  - Muscle spasms [Unknown]
  - Bone pain [Unknown]
  - Bone disorder [Unknown]
  - Calcium deficiency [Unknown]
  - Cataract [Unknown]
  - Arthritis [Unknown]
  - Fibula fracture [Unknown]
  - Limb injury [Unknown]
  - Fall [Unknown]
